FAERS Safety Report 8501418-8 (Version None)
Quarter: 2012Q3

REPORT INFORMATION
  Report Type: 
  Country: None (occurrence: None)
  Receive Date: 20120710
  Receipt Date: 20120619
  Transmission Date: 20120928
  Serious: Yes (Hospitalization, Other)
  Sender: FDA-Public Use
  Company Number: PT-BAXTER-2012BAX004963

PATIENT
  Sex: Male
  Weight: 81 kg

DRUGS (13)
  1. PHYSIONEAL 40 GLUCOSE 1,36% P/V / 13,6 MG/ML [Suspect]
     Route: 033
     Dates: start: 20101028
  2. FUROSEMIDE [Concomitant]
     Route: 065
  3. ENALAPRIL MALEATE [Concomitant]
     Route: 065
  4. EXTRANEAL [Suspect]
     Route: 033
     Dates: start: 20101028
  5. NEORECORMON [Concomitant]
     Route: 058
  6. CALCITRIOL [Concomitant]
     Route: 065
  7. ACETYLSALICYLIC ACID SRT [Concomitant]
     Route: 065
  8. CLONIDINE [Concomitant]
     Route: 065
  9. SEVELAMER [Concomitant]
     Route: 065
  10. FLUCONAZOLE [Concomitant]
     Route: 048
     Dates: end: 20120530
  11. ATORVASTATIN [Concomitant]
     Route: 065
  12. AMLODIPINE [Concomitant]
     Route: 065
  13. CARVEDILOL [Concomitant]
     Route: 065

REACTIONS (5)
  - PERITONEAL DIALYSIS COMPLICATION [None]
  - PYREXIA [None]
  - PERITONITIS [None]
  - PERITONITIS BACTERIAL [None]
  - DIARRHOEA [None]
